FAERS Safety Report 6966657-6 (Version None)
Quarter: 2010Q3

REPORT INFORMATION
  Report Type: 
  Country: None (occurrence: None)
  Receive Date: 20100906
  Receipt Date: 20100824
  Transmission Date: 20110219
  Serious: No
  Sender: FDA-Public Use
  Company Number: US-BIOGENIDEC-2010BI029250

PATIENT
  Sex: Female

DRUGS (2)
  1. AVONEX [Suspect]
     Indication: MULTIPLE SCLEROSIS
     Route: 030
     Dates: start: 19970824
  2. AVONEX [Suspect]
     Route: 030

REACTIONS (4)
  - INFLUENZA LIKE ILLNESS [None]
  - MUSCLE SPASMS [None]
  - PAIN [None]
  - TREMOR [None]
